FAERS Safety Report 5296900-3 (Version None)
Quarter: 2007Q1

REPORT INFORMATION
  Report Type: 
  Country: None (occurrence: None)
  Receive Date: 20070201
  Receipt Date: 20061020
  Transmission Date: 20070707
  Serious: No
  Sender: FDA-Public Use
  Company Number: 2006PV023692

PATIENT
  Age: 45 Year
  Sex: Female
  Weight: 91.6266 kg

DRUGS (1)
  1. BYETTA [Suspect]
     Indication: GLUCOSE TOLERANCE IMPAIRED
     Dosage: 5 MCG; SC
     Route: 058
     Dates: start: 20060927

REACTIONS (9)
  - BLOOD GLUCOSE DECREASED [None]
  - DECREASED APPETITE [None]
  - FALL [None]
  - HYPERHIDROSIS [None]
  - INJECTION SITE BRUISING [None]
  - INJECTION SITE PAIN [None]
  - TREMOR [None]
  - UPPER LIMB FRACTURE [None]
  - WEIGHT DECREASED [None]
